FAERS Safety Report 4543112-4 (Version None)
Quarter: 2004Q4

REPORT INFORMATION
  Report Type: 
  Country: None (occurrence: None)
  Receive Date: 20041229
  Receipt Date: 20041213
  Transmission Date: 20050328
  Serious: Yes (Death)
  Sender: FDA-Public Use
  Company Number: DSA_25510_2004

PATIENT
  Age: 65 Year
  Sex: Female

DRUGS (4)
  1. RENITEC [Suspect]
     Dosage: DF
  2. DIGOXIN [Concomitant]
  3. LASILIX [Concomitant]
  4. KARDEGIC [Concomitant]

REACTIONS (3)
  - ATRIAL FIBRILLATION [None]
  - CARDIAC ARREST [None]
  - SUDDEN CARDIAC DEATH [None]
